FAERS Safety Report 5012224-3 (Version None)
Quarter: 2006Q2

REPORT INFORMATION
  Report Type: 
  Country: None (occurrence: None)
  Receive Date: 20060524
  Receipt Date: 20060516
  Transmission Date: 20061013
  Serious: Yes (Hospitalization)
  Sender: FDA-Public Use
  Company Number: 2006BI005184

PATIENT
  Age: 17 Year
  Sex: Female

DRUGS (1)
  1. AVONEX [Suspect]
     Indication: MULTIPLE SCLEROSIS
     Dosage: 30 UG; UNKNOWN; IM
     Route: 030
     Dates: start: 20030601

REACTIONS (2)
  - HEMIPLEGIA [None]
  - MULTIPLE SCLEROSIS RELAPSE [None]
